FAERS Safety Report 12165494 (Version 1)
Quarter: 2016Q1

REPORT INFORMATION
  Report Type: Spontaneous
  Country: FR (occurrence: FR)
  Receive Date: 20160309
  Receipt Date: 20160309
  Transmission Date: 20160526
  Serious: Yes (Hospitalization, Other)
  Sender: FDA-Public Use
  Company Number: FR-TEVA-641639ISR

PATIENT
  Age: 61 Year
  Sex: Female

DRUGS (4)
  1. DOXORUBICINE TEVA 200 MG/100 ML [Suspect]
     Active Substance: DOXORUBICIN
     Indication: SARCOMA
     Dosage: 78 MILLIGRAM DAILY;
     Route: 041
     Dates: start: 20160212, end: 20160212
  2. IFOSFAMIDE EG [Suspect]
     Active Substance: IFOSFAMIDE
     Indication: SARCOMA
     Dosage: 6.56 GRAM DAILY;
     Route: 041
     Dates: start: 20160212, end: 20160213
  3. VITAMINE B1 B6 [Concomitant]
     Active Substance: PYRIDOXINE HYDROCHLORIDE\THIAMINE HYDROCHLORIDE
  4. MESNA EG [Concomitant]
     Active Substance: MESNA

REACTIONS (3)
  - Encephalopathy [Recovered/Resolved]
  - Fluid overload [Unknown]
  - Hypoalbuminaemia [Unknown]

NARRATIVE: CASE EVENT DATE: 20160213
